FAERS Safety Report 15688622 (Version 1)
Quarter: 2018Q4

REPORT INFORMATION
  Report Type: Spontaneous
  Country: SE (occurrence: SE)
  Receive Date: 20181205
  Receipt Date: 20181205
  Transmission Date: 20190205
  Serious: Yes (Hospitalization)
  Sender: FDA-Public Use
  Company Number: SE-ACCORD-095272

PATIENT
  Age: 42 Year
  Sex: Male

DRUGS (6)
  1. GABAPENTIN. [Concomitant]
     Active Substance: GABAPENTIN
  2. ENALAPRIL [Concomitant]
     Active Substance: ENALAPRIL
  3. LEVETIRACETAM. [Suspect]
     Active Substance: LEVETIRACETAM
     Indication: EPILEPSY
     Dosage: 2.5X2?ADDITIONAL DOSE TAKEN FOR 12 DAYS (TILL 29-DEC-2017) 2000 MG PER DAY
     Route: 048
     Dates: start: 20171230, end: 20180111
  4. PANODIL [Concomitant]
     Active Substance: ACETAMINOPHEN
  5. ZOPICLONE [Concomitant]
     Active Substance: ZOPICLONE
  6. SERTRALINE [Concomitant]
     Active Substance: SERTRALINE HYDROCHLORIDE

REACTIONS (1)
  - Personality change [Recovered/Resolved with Sequelae]

NARRATIVE: CASE EVENT DATE: 20180110
